FAERS Safety Report 25478642 (Version 1)
Quarter: 2025Q2

REPORT INFORMATION
  Report Type: Spontaneous
  Country: SY (occurrence: SY)
  Receive Date: 20250625
  Receipt Date: 20250625
  Transmission Date: 20250717
  Serious: Yes (Hospitalization, Other)
  Sender: Norvium Bioscience
  Company Number: SY-Norvium Bioscience LLC-080322

PATIENT
  Age: 66 Year
  Sex: Male

DRUGS (1)
  1. DOXORUBICIN HYDROCHLORIDE [Suspect]
     Active Substance: DOXORUBICIN HYDROCHLORIDE
     Indication: Bladder transitional cell carcinoma stage I
     Route: 043

REACTIONS (3)
  - Contracted bladder [Recovered/Resolved]
  - Urethral stenosis [Recovered/Resolved]
  - Vesicoureteric reflux [Recovered/Resolved]
